FAERS Safety Report 18732673 (Version 1)
Quarter: 2021Q1

REPORT INFORMATION
  Report Type: Spontaneous
  Country: US (occurrence: US)
  Receive Date: 20210112
  Receipt Date: 20210112
  Transmission Date: 20210419
  Serious: No
  Sender: FDA-Public Use
  Company Number: US-VERTEX PHARMACEUTICALS-2020-021544

PATIENT
  Sex: Female

DRUGS (31)
  1. TRIKAFTA [Suspect]
     Active Substance: ELEXACAFTOR\IVACAFTOR\TEZACAFTOR
     Indication: CYSTIC FIBROSIS
     Dosage: 2 TAB (ELEXA 100 MG/ TEZA 50 MG/ IVA 75 MG) AM, 1 TAB (IVA 50 MG) PM
     Route: 048
     Dates: start: 20191205
  2. AZELASTINE. [Concomitant]
     Active Substance: AZELASTINE HYDROCHLORIDE
  3. CITALOPRAM [Concomitant]
     Active Substance: CITALOPRAM HYDROBROMIDE
  4. SYMBICORT [Concomitant]
     Active Substance: BUDESONIDE\FORMOTEROL FUMARATE DIHYDRATE
  5. ZYRTEC [Concomitant]
     Active Substance: CETIRIZINE HYDROCHLORIDE
  6. KETOTIFEN [Concomitant]
     Active Substance: KETOTIFEN
  7. ZENPEP [Concomitant]
     Active Substance: PANCRELIPASE AMYLASE\PANCRELIPASE LIPASE\PANCRELIPASE PROTEASE
  8. SEROQUEL [Interacting]
     Active Substance: QUETIAPINE FUMARATE
     Indication: DEPRESSION
     Route: 065
  9. SEROQUEL [Interacting]
     Active Substance: QUETIAPINE FUMARATE
     Indication: INSOMNIA
  10. BUDESONIDE. [Concomitant]
     Active Substance: BUDESONIDE
  11. OMEPRAZOLE. [Concomitant]
     Active Substance: OMEPRAZOLE
  12. SEROQUEL [Interacting]
     Active Substance: QUETIAPINE FUMARATE
     Indication: ANXIETY
  13. MIRALAX [Concomitant]
     Active Substance: POLYETHYLENE GLYCOL 3350
  14. MONTELUKAST [Concomitant]
     Active Substance: MONTELUKAST SODIUM
  15. MOTRIN [Concomitant]
     Active Substance: IBUPROFEN
  16. VENTOLINE [SALBUTAMOL] [Concomitant]
     Active Substance: ALBUTEROL SULFATE
  17. ALBUTEROL [SALBUTAMOL] [Concomitant]
     Active Substance: ALBUTEROL
  18. BACLOFEN. [Concomitant]
     Active Substance: BACLOFEN
  19. FOLIC ACID. [Concomitant]
     Active Substance: FOLIC ACID
  20. LINZESS [Concomitant]
     Active Substance: LINACLOTIDE
  21. AMITIZA [Concomitant]
     Active Substance: LUBIPROSTONE
  22. GABAPENTIN. [Concomitant]
     Active Substance: GABAPENTIN
  23. MUCUS RELIEF [Concomitant]
     Active Substance: GUAIFENESIN
  24. BACTRIM [Concomitant]
     Active Substance: SULFAMETHOXAZOLE\TRIMETHOPRIM
  25. BENADRYL [Concomitant]
     Active Substance: DIPHENHYDRAMINE HYDROCHLORIDE
  26. CAYSTON [Concomitant]
     Active Substance: AZTREONAM
  27. MEROPENEM. [Concomitant]
     Active Substance: MEROPENEM
  28. SPIRIVA RESPIMAT [Concomitant]
     Active Substance: TIOTROPIUM BROMIDE
  29. AZITHROMYCIN ANHYDROUS. [Concomitant]
     Active Substance: AZITHROMYCIN ANHYDROUS
  30. TOBRAMYCIN. [Concomitant]
     Active Substance: TOBRAMYCIN
  31. TYLENOL [Concomitant]
     Active Substance: ACETAMINOPHEN

REACTIONS (13)
  - Mental disorder [Recovering/Resolving]
  - Weight increased [Not Recovered/Not Resolved]
  - Lethargy [Recovering/Resolving]
  - Depression [Recovered/Resolved]
  - Drug interaction [Recovered/Resolved]
  - Rash [Not Recovered/Not Resolved]
  - Paranasal sinus inflammation [Not Recovered/Not Resolved]
  - Anxiety [Recovered/Resolved]
  - Acne [Not Recovered/Not Resolved]
  - Somnolence [Recovering/Resolving]
  - Panic attack [Recovered/Resolved]
  - Hypertrichosis [Not Recovered/Not Resolved]
  - Fatigue [Not Recovered/Not Resolved]

NARRATIVE: CASE EVENT DATE: 2019
